FAERS Safety Report 5244503-9 (Version None)
Quarter: 2007Q1

REPORT INFORMATION
  Report Type: 
  Country: None (occurrence: None)
  Receive Date: 20070222
  Receipt Date: 20070221
  Transmission Date: 20070707
  Serious: Yes (Death)
  Sender: FDA-Public Use
  Company Number: US-BOEHRINGER INGELHEIM PHARMACEUTICALS, INC.-2007-BP-02496BP

PATIENT
  Sex: Male

DRUGS (3)
  1. SPIRIVA [Suspect]
     Indication: CHRONIC OBSTRUCTIVE PULMONARY DISEASE
     Route: 055
     Dates: start: 20060101, end: 20070220
  2. ALBUTEROL [Suspect]
  3. ADVAIR DISKUS 100/50 [Suspect]

REACTIONS (7)
  - ASTHENIA [None]
  - COUGH [None]
  - DIZZINESS [None]
  - DYSURIA [None]
  - FLUID RETENTION [None]
  - HYPOVENTILATION [None]
  - SWELLING [None]
